FAERS Safety Report 5975555-6 (Version None)
Quarter: 2008Q4

REPORT INFORMATION
  Report Type: 
  Country: None (occurrence: None)
  Receive Date: 20081202
  Receipt Date: 20080813
  Transmission Date: 20090506
  Serious: No
  Sender: FDA-Public Use
  Company Number: A0739221A

PATIENT
  Age: 35 Year
  Sex: Female

DRUGS (3)
  1. AUGMENTIN XR [Suspect]
     Indication: ACUTE SINUSITIS
     Dosage: 1G TWICE PER DAY
     Route: 048
     Dates: start: 20080717, end: 20080722
  2. ALLEGRA [Concomitant]
  3. BENADRYL [Concomitant]

REACTIONS (6)
  - COUGH [None]
  - DRUG INEFFECTIVE [None]
  - INSOMNIA [None]
  - SINUSITIS [None]
  - SNEEZING [None]
  - VULVOVAGINAL MYCOTIC INFECTION [None]
